FAERS Safety Report 4918735-0 (Version None)
Quarter: 2006Q1

REPORT INFORMATION
  Report Type: 
  Country: None (occurrence: None)
  Receive Date: 20060216
  Receipt Date: 20060130
  Transmission Date: 20060701
  Serious: Yes (Hospitalization)
  Sender: FDA-Public Use
  Company Number: US200601005539

PATIENT
  Age: 70 Year
  Sex: Female

DRUGS (2)
  1. FORTEO [Suspect]
  2. FORTEO PEN                   (FORTEO PEN) [Concomitant]

REACTIONS (2)
  - ATRIAL FIBRILLATION [None]
  - TACHYCARDIA [None]
